FAERS Safety Report 9321653 (Version 1)
Quarter: 2013Q2

REPORT INFORMATION
  Report Type: Spontaneous
  Country: US (occurrence: US)
  Receive Date: 20130531
  Receipt Date: 20130531
  Transmission Date: 20140414
  Serious: No
  Sender: FDA-Public Use
  Company Number: US-BAYER-2013-066758

PATIENT
  Age: 66 Year
  Sex: Female
  Weight: 77.1 kg

DRUGS (6)
  1. ALEVE CAPLET [Suspect]
     Indication: ARTHRITIS
     Dosage: 1 DF, PRN
     Dates: start: 1998
  2. ALEVE CAPLET [Suspect]
     Indication: ARTHRITIS
     Dosage: 2 DF, QD
     Dates: start: 2003
  3. HORMONES NOS [Concomitant]
  4. CYMBALTA [Concomitant]
  5. GABAPENTIN [Concomitant]
  6. CALCIUM [Concomitant]

REACTIONS (1)
  - Incorrect drug administration duration [None]
